FAERS Safety Report 16357229 (Version 2)
Quarter: 2020Q2

REPORT INFORMATION
  Report Type: Spontaneous
  Country: US (occurrence: US)
  Receive Date: 20190527
  Receipt Date: 20200512
  Transmission Date: 20200713
  Serious: Yes (Other)
  Sender: FDA-Public Use
  Company Number: US-TORRENT-00007488

PATIENT
  Sex: Female
  Weight: 95 kg

DRUGS (1)
  1. LOSARTAN POTASSIUM AND HYDROCHLOROTHIAZIDE [Suspect]
     Active Substance: HYDROCHLOROTHIAZIDE\LOSARTAN POTASSIUM
     Indication: HYPERTENSION
     Dosage: TAKE ONCE A DAY
     Dates: end: 201812

REACTIONS (14)
  - Muscle spasms [Unknown]
  - Pain in extremity [Unknown]
  - General physical health deterioration [Unknown]
  - Bone pain [Unknown]
  - Feeling hot [Unknown]
  - Renal failure [Unknown]
  - Renal disorder [Unknown]
  - Peripheral coldness [Unknown]
  - Alopecia [Unknown]
  - Diarrhoea [Unknown]
  - Asthenia [Unknown]
  - Joint warmth [Unknown]
  - Gait disturbance [Unknown]
  - Liver disorder [Unknown]
